FAERS Safety Report 4327893-0 (Version None)
Quarter: 2004Q1

REPORT INFORMATION
  Report Type: 
  Country: None (occurrence: None)
  Receive Date: 20040325
  Receipt Date: 20040312
  Transmission Date: 20041129
  Serious: Yes (Hospitalization)
  Sender: FDA-Public Use
  Company Number: FR-JNJFOC-20040201939

PATIENT
  Age: 36 Year
  Sex: Female

DRUGS (9)
  1. HALDOL [Suspect]
     Dosage: INTRA-MUSCULAR
     Route: 030
     Dates: start: 20031107, end: 20031126
  2. HALDOL [Suspect]
     Dosage: ORAL
     Route: 048
     Dates: start: 20031127, end: 20031216
  3. HALDOL [Suspect]
     Dosage: ORAL
     Route: 048
     Dates: start: 20031217, end: 20031219
  4. DEPAMIDE (VALPROMIDE) [Suspect]
     Dates: end: 20031219
  5. HEPT-A-MYL (HEPTAMINOL HYDROCHLORIDE) [Concomitant]
  6. NOCTAMIDE (LORMETAZEPAM) [Concomitant]
  7. VALIUM [Concomitant]
  8. PARKINANE LP (TRIHEXYPHENIDYL HYDROCHLORIDE) [Concomitant]
  9. ^NOCTRAN^ (ACEPROMETAZINE) [Concomitant]

REACTIONS (4)
  - ANOREXIA [None]
  - BLOOD CREATINE PHOSPHOKINASE INCREASED [None]
  - DRUG INTERACTION [None]
  - EXTRAPYRAMIDAL DISORDER [None]
